FAERS Safety Report 7583748-X (Version None)
Quarter: 2011Q2

REPORT INFORMATION
  Report Type: 
  Country: None (occurrence: None)
  Receive Date: 20110531
  Receipt Date: 20100511
  Transmission Date: 20111010
  Serious: Yes (Hospitalization, Other)
  Sender: FDA-Public Use
  Company Number: 300032

PATIENT
  Age: 13 Year
  Sex: Female
  Weight: 36.3 kg

DRUGS (1)
  1. NORDITROPIN NORDIFLEX [Suspect]
     Indication: GROWTH HORMONE DEFICIENCY
     Dosage: 1.65 MG, SUBCUTANEOUS
     Route: 058
     Dates: start: 20091005, end: 20090101

REACTIONS (1)
  - BENIGN INTRACRANIAL HYPERTENSION [None]
